FAERS Safety Report 8664484 (Version 2)
Quarter: 2013Q4

REPORT INFORMATION
  Report Type: Spontaneous
  Country: US (occurrence: US)
  Receive Date: 20120713
  Receipt Date: 20131004
  Transmission Date: 20140711
  Serious: Yes (Other)
  Sender: FDA-Public Use
  Company Number: US-TEVA-347948USA

PATIENT
  Age: 49 Year
  Sex: Female
  Weight: 53.57 kg

DRUGS (3)
  1. COPAXONE [Suspect]
     Indication: MULTIPLE SCLEROSIS
     Dosage: 20 MILLIGRAM DAILY;
     Route: 058
     Dates: start: 20101105
  2. TRICOR [Concomitant]
     Indication: BLOOD CHOLESTEROL INCREASED
     Route: 048
  3. DILTIAZEM [Concomitant]
     Indication: RAYNAUD^S PHENOMENON
     Route: 048

REACTIONS (2)
  - Thyroid cancer [Not Recovered/Not Resolved]
  - Breast cancer [Not Recovered/Not Resolved]
